FAERS Safety Report 15794877 (Version 1)
Quarter: 2019Q1

REPORT INFORMATION
  Report Type: Report from Study
  Country: None (occurrence: ES)
  Receive Date: 20190107
  Receipt Date: 20190107
  Transmission Date: 20190417
  Serious: Yes (Hospitalization)
  Sender: FDA-Public Use
  Company Number: ES-ABBVIE-19S-144-2611464-00

PATIENT
  Age: 3 Month
  Sex: Male
  Weight: 4.57 kg

DRUGS (2)
  1. SYNAGIS [Suspect]
     Active Substance: PALIVIZUMAB
     Indication: PREMATURE BABY
     Route: 030
     Dates: start: 20181005
  2. SYNAGIS [Suspect]
     Active Substance: PALIVIZUMAB
     Indication: ANTIVIRAL PROPHYLAXIS
     Route: 030
     Dates: start: 20181214

REACTIONS (2)
  - Respiratory syncytial virus bronchiolitis [Recovering/Resolving]
  - Secretion discharge [Recovering/Resolving]

NARRATIVE: CASE EVENT DATE: 20181218
